FAERS Safety Report 6147309-1 (Version None)
Quarter: 2009Q2

REPORT INFORMATION
  Report Type: 
  Country: None (occurrence: None)
  Receive Date: 20090408
  Receipt Date: 20090327
  Transmission Date: 20091009
  Serious: Yes (Other)
  Sender: FDA-Public Use
  Company Number: PHHY2009GB11979

PATIENT
  Sex: Female

DRUGS (1)
  1. CLOZARIL [Suspect]
     Indication: SCHIZOPHRENIA
     Dosage: UNK
     Dates: start: 20080129

REACTIONS (4)
  - INFECTION [None]
  - LOWER RESPIRATORY TRACT INFECTION [None]
  - TOOTH DISORDER [None]
  - URINARY TRACT INFECTION [None]
